FAERS Safety Report 20771122 (Version 1)
Quarter: 2022Q2

REPORT INFORMATION
  Report Type: Spontaneous
  Country: US (occurrence: US)
  Receive Date: 20220429
  Receipt Date: 20220429
  Transmission Date: 20220721
  Serious: No
  Sender: FDA-Public Use
  Company Number: US-TEVA-2022-US-2024712

PATIENT
  Age: 91 Year
  Sex: Female

DRUGS (2)
  1. METOPROLOL TARTRATE [Suspect]
     Active Substance: METOPROLOL TARTRATE
     Indication: Arrhythmia
  2. TIMOLOL [Concomitant]
     Active Substance: TIMOLOL

REACTIONS (3)
  - Blood pressure increased [Unknown]
  - Skin discolouration [Not Recovered/Not Resolved]
  - Feeling hot [Not Recovered/Not Resolved]
